FAERS Safety Report 8476403-5 (Version None)
Quarter: 2012Q2

REPORT INFORMATION
  Report Type: 
  Country: None (occurrence: None)
  Receive Date: 20120622
  Receipt Date: 20120608
  Transmission Date: 20120825
  Serious: Yes (Life-Threatening, Hospitalization, Other)
  Sender: FDA-Public Use
  Company Number: FK201201611

PATIENT
  Age: 77 Year
  Sex: Male

DRUGS (1)
  1. METHYLPREDNISOLONE [Suspect]
     Indication: CHRONIC LYMPHOCYTIC LEUKAEMIA
     Dosage: 80 MG, DAILY

REACTIONS (20)
  - DISORIENTATION [None]
  - PNEUMONIA PNEUMOCOCCAL [None]
  - EUPHORIC MOOD [None]
  - ANXIETY [None]
  - FEELING GUILTY [None]
  - RESPIRATORY FAILURE [None]
  - HALLUCINATION, VISUAL [None]
  - PULMONARY EMBOLISM [None]
  - HOMICIDE [None]
  - DISSOCIATIVE DISORDER [None]
  - TERMINAL INSOMNIA [None]
  - AMNESIA [None]
  - MAJOR DEPRESSION [None]
  - SUICIDAL IDEATION [None]
  - PHYSICAL ASSAULT [None]
  - DELIRIUM [None]
  - SUBSTANCE-INDUCED PSYCHOTIC DISORDER [None]
  - SLEEP DISORDER [None]
  - NERVOUSNESS [None]
  - HYPONATRAEMIA [None]
